FAERS Safety Report 9503321 (Version 3)
Quarter: 2013Q4

REPORT INFORMATION
  Report Type: Spontaneous
  Country: JP (occurrence: JP)
  Receive Date: 20130906
  Receipt Date: 20131211
  Transmission Date: 20140711
  Serious: Yes (Hospitalization, Other)
  Sender: FDA-Public Use
  Company Number: JP-PFIZER INC-2013252593

PATIENT
  Age: 71 Year
  Sex: Male

DRUGS (2)
  1. INLYTA [Suspect]
     Indication: RENAL CANCER METASTATIC
     Dosage: 10 MG, 1X/DAY
     Route: 048
     Dates: start: 20130327, end: 20130827
  2. ZOMETA [Concomitant]
     Indication: RENAL CANCER METASTATIC
     Dosage: UNK
     Route: 042
     Dates: start: 20130327, end: 20130827

REACTIONS (3)
  - Atypical mycobacterial infection [Recovering/Resolving]
  - Pneumonia aspiration [Recovered/Resolved]
  - Bacterial test positive [Recovering/Resolving]
